FAERS Safety Report 22058667 (Version 1)
Quarter: 2023Q1

REPORT INFORMATION
  Report Type: Spontaneous
  Country: NL (occurrence: NL)
  Receive Date: 20230303
  Receipt Date: 20230303
  Transmission Date: 20230417
  Serious: Yes (Death)
  Sender: FDA-Public Use
  Company Number: None

PATIENT
  Sex: Female
  Weight: 80 kg

DRUGS (1)
  1. AMIODARONE [Suspect]
     Active Substance: AMIODARONE
     Indication: Arrhythmia
     Dosage: 200 MILLIGRAM, QD, 1 X PER DAY 1 PIECE
     Route: 065
     Dates: start: 20220401

REACTIONS (1)
  - Pulmonary fibrosis [Fatal]
